FAERS Safety Report 6714106-5 (Version None)
Quarter: 2010Q2

REPORT INFORMATION
  Report Type: 
  Country: None (occurrence: None)
  Receive Date: 20100506
  Receipt Date: 20100428
  Transmission Date: 20101027
  Serious: Yes (Hospitalization)
  Sender: FDA-Public Use
  Company Number: US-JNJFOC-20091207955

PATIENT
  Sex: Male

DRUGS (2)
  1. TYLENOL (CAPLET) [Suspect]
     Route: 048
  2. TYLENOL (CAPLET) [Suspect]
     Indication: ARTHRITIS
     Dosage: POSSIBLY 3 DOSES OVER A 48 HOUR PERIOD
     Route: 048

REACTIONS (3)
  - GASTRIC ULCER [None]
  - PEPTIC ULCER HAEMORRHAGE [None]
  - PRODUCT QUALITY ISSUE [None]
